FAERS Safety Report 25855536 (Version 1)
Quarter: 2025Q3

REPORT INFORMATION
  Report Type: Spontaneous
  Country: JP (occurrence: JP)
  Receive Date: 20250927
  Receipt Date: 20250927
  Transmission Date: 20251020
  Serious: Yes (Death)
  Sender: ALEXION PHARMACEUTICALS
  Company Number: JP-AstraZeneca-CH-00957417A

PATIENT
  Age: 59 Year
  Sex: Female

DRUGS (3)
  1. TRUQAP [Suspect]
     Active Substance: CAPIVASERTIB
     Indication: Breast cancer female
     Dosage: 400 MILLIGRAM, BID
     Dates: start: 2025, end: 2025
  2. FASLODEX [Suspect]
     Active Substance: FULVESTRANT
     Indication: Breast cancer female
     Dosage: 500 MILLIGRAM, QD
     Dates: start: 2025, end: 2025
  3. FASLODEX [Suspect]
     Active Substance: FULVESTRANT

REACTIONS (2)
  - Hyperglycaemia [Fatal]
  - Renal failure [Fatal]

NARRATIVE: CASE EVENT DATE: 20250101
